FAERS Safety Report 6172217-X (Version None)
Quarter: 2009Q2

REPORT INFORMATION
  Report Type: 
  Country: None (occurrence: None)
  Receive Date: 20090429
  Receipt Date: 20080508
  Transmission Date: 20091009
  Serious: No
  Sender: FDA-Public Use
  Company Number: A0726891A

PATIENT

DRUGS (4)
  1. ZOFRAN [Suspect]
     Indication: HYPEREMESIS GRAVIDARUM
     Dosage: 8MG THREE TIMES PER DAY
     Dates: start: 20080101
  2. REGLAN [Concomitant]
  3. ZYRTEC [Concomitant]
  4. VITAMIN B COMPLEX CAP [Concomitant]

REACTIONS (2)
  - DRUG EXPOSURE DURING PREGNANCY [None]
  - FOETAL ARRHYTHMIA [None]
